FAERS Safety Report 15813984 (Version 2)
Quarter: 2019Q1

REPORT INFORMATION
  Report Type: Spontaneous
  Country: US (occurrence: US)
  Receive Date: 20190111
  Receipt Date: 20190209
  Transmission Date: 20190417
  Serious: Yes (Death)
  Sender: FDA-Public Use
  Company Number: US-IMPAX LABORATORIES, LLC-2018-IPXL-04486

PATIENT

DRUGS (1)
  1. GLYBURIDE. [Suspect]
     Active Substance: GLYBURIDE
     Indication: BRAIN OEDEMA
     Dosage: UNK (APPROXIMATELY 3 MG PER DAY FOR 72 HOURS)
     Route: 042

REACTIONS (2)
  - Drug ineffective for unapproved indication [Fatal]
  - Adverse event [Fatal]
